FAERS Safety Report 8886222 (Version 2)
Quarter: 2012Q4

REPORT INFORMATION
  Report Type: 
  Country: US (occurrence: US)
  Receive Date: 20121105
  Receipt Date: 20121120
  Transmission Date: 20130627
  Serious: Yes (Hospitalization)
  Sender: FDA-Public Use
  Company Number: US-BAYER-2012-114512

PATIENT
  Age: 88 Year
  Sex: Female

DRUGS (3)
  1. XARELTO [Suspect]
     Indication: THROMBOSIS PROPHYLAXIS
     Dosage: 10 mg, UNK
     Route: 048
  2. XARELTO [Interacting]
     Indication: JOINT ARTHROPLASTY
  3. ACETYLSALICYLIC ACID (} 100 MG) [Interacting]

REACTIONS (1)
  - Haematochezia [Unknown]
